FAERS Safety Report 7013942-8 (Version None)
Quarter: 2010Q3

REPORT INFORMATION
  Report Type: 
  Country: None (occurrence: None)
  Receive Date: 20100924
  Receipt Date: 20100915
  Transmission Date: 20110219
  Serious: Yes (Life-Threatening, Hospitalization)
  Sender: FDA-Public Use
  Company Number: JP-AMGEN-US408397

PATIENT
  Sex: Female

DRUGS (5)
  1. ENBREL [Suspect]
     Indication: RHEUMATOID ARTHRITIS
     Route: 058
     Dates: start: 20100119, end: 20100325
  2. SELBEX [Concomitant]
     Route: 048
  3. HYPEN [Concomitant]
     Route: 048
  4. METHOTREXATE [Concomitant]
     Route: 048
     Dates: end: 20100325
  5. FOLIAMIN [Concomitant]
     Route: 048
     Dates: end: 20100325

REACTIONS (1)
  - PNEUMOCYSTIS JIROVECI PNEUMONIA [None]
